FAERS Safety Report 9486104 (Version 2)
Quarter: 2013Q3

REPORT INFORMATION
  Report Type: Spontaneous
  Country: US (occurrence: US)
  Receive Date: 20130829
  Receipt Date: 20130829
  Transmission Date: 20140515
  Serious: Yes (Hospitalization)
  Sender: FDA-Public Use
  Company Number: US-NOVOPROD-385593

PATIENT
  Age: 17 Year
  Sex: Female

DRUGS (3)
  1. VICTOZA [Suspect]
     Indication: INSULIN RESISTANCE
     Dosage: 0.6 MG QD
     Route: 058
     Dates: start: 201307
  2. VICTOZA [Suspect]
     Dosage: 1.2 MG QD
     Route: 058
  3. VICTOZA [Suspect]
     Dosage: 1.8 MG QD
     Route: 058
     Dates: end: 20130816

REACTIONS (1)
  - Kidney infection [Recovering/Resolving]
